FAERS Safety Report 10389646 (Version 1)
Quarter: 2014Q1

REPORT INFORMATION
  Report Type: Spontaneous
  Country: US (occurrence: None)
  Receive Date: 20140306
  Receipt Date: 20140306
  Transmission Date: 20141002
  Serious: Yes (Other)
  Sender: FDA-Public Use
  Company Number: 163-21880-13122487

PATIENT
  Age: 72 Year
  Sex: Male
  Weight: 80.4 kg

DRUGS (9)
  1. REVLIMID (LENALIDOMIDE) (25 MILLIGRAM, CAPSULES) [Suspect]
     Indication: PLASMA CELL MYELOMA
     Route: 048
     Dates: start: 20130517
  2. ASPIRIN [Concomitant]
  3. COENZYME Q10 (UBIDECARENONE) [Concomitant]
  4. FOLIC ACID (FOLIC ACID) [Concomitant]
  5. INSULIN GLARGINE (INSULIN GLARGINE) (INJECTION) [Concomitant]
  6. METOPROLOL (METOPROLOL) [Concomitant]
  7. PRAVASTATIN (PRAVASTATIN) [Concomitant]
  8. LEVOTHYROXINE (LEVOTHYROXINE) [Concomitant]
  9. HYDROCODONE/ACETAMINOPHEN (REMEDEINE) [Concomitant]

REACTIONS (2)
  - Pancytopenia [None]
  - White blood cell count decreased [None]
